FAERS Safety Report 13661752 (Version 1)
Quarter: 2017Q2

REPORT INFORMATION
  Report Type: Spontaneous
  Country: US (occurrence: US)
  Receive Date: 20170616
  Receipt Date: 20170616
  Transmission Date: 20170830
  Serious: Yes (Hospitalization)
  Sender: FDA-Public Use
  Company Number: US-ELI_LILLY_AND_COMPANY-US201706002310

PATIENT
  Sex: Male

DRUGS (2)
  1. CIALIS [Suspect]
     Active Substance: TADALAFIL
     Indication: PROSTATECTOMY
     Dosage: 5 MG, DAILY
     Route: 048
     Dates: start: 20161030
  2. CIALIS [Suspect]
     Active Substance: TADALAFIL
     Dosage: 20 MG, OTHER
     Route: 048

REACTIONS (10)
  - Nasal congestion [Unknown]
  - Pain [Not Recovered/Not Resolved]
  - Pyrexia [Unknown]
  - Gait disturbance [Not Recovered/Not Resolved]
  - Chills [Unknown]
  - Off label use [Unknown]
  - Staphylococcal infection [Not Recovered/Not Resolved]
  - Dysphonia [Unknown]
  - Sensory loss [Not Recovered/Not Resolved]
  - Nerve injury [Not Recovered/Not Resolved]
